FAERS Safety Report 14412650 (Version 3)
Quarter: 2018Q1

REPORT INFORMATION
  Report Type: Spontaneous
  Country: US (occurrence: US)
  Receive Date: 20180119
  Receipt Date: 20180320
  Transmission Date: 20180509
  Serious: Yes (Other)
  Sender: FDA-Public Use
  Company Number: US-SAOL THERAPEUTICS-0700552130

PATIENT
  Age: 65 Year
  Sex: Male
  Weight: 83.9 kg

DRUGS (12)
  1. LIORESAL [Suspect]
     Active Substance: BACLOFEN
     Dosage: 1398.8 ?G, \DAY
     Route: 037
     Dates: start: 20150206
  2. LIORESAL [Suspect]
     Active Substance: BACLOFEN
     Dosage: 335 ?G, \DAY
     Route: 037
  3. WARFARIN [Concomitant]
     Active Substance: WARFARIN
  4. LIORESAL [Suspect]
     Active Substance: BACLOFEN
     Dosage: 1502.6 ?G, \DAY
     Route: 037
     Dates: end: 20150206
  5. BACLOFEN. [Concomitant]
     Active Substance: BACLOFEN
     Dosage: 30 MG, 4X/DAY
     Route: 048
  6. LIORESAL [Suspect]
     Active Substance: BACLOFEN
     Dosage: 1451.6 ?G, \DAY
     Route: 037
     Dates: start: 20140523, end: 20141219
  7. LIORESAL [Suspect]
     Active Substance: BACLOFEN
     Indication: CRANIOCEREBRAL INJURY
     Dosage: 1299.6 ?G, \DAY
     Route: 037
     Dates: end: 20140404
  8. LIORESAL [Suspect]
     Active Substance: BACLOFEN
     Dosage: 1349.7 ?G, \DAY
     Route: 037
     Dates: start: 20140404, end: 20140523
  9. LIORESAL [Suspect]
     Active Substance: BACLOFEN
     Indication: MUSCLE SPASTICITY
     Dosage: 1460 ?G, \DAY
     Route: 037
     Dates: start: 200606
  10. LIORESAL [Suspect]
     Active Substance: BACLOFEN
     Dosage: 1502.6 ?G, \DAY
     Route: 037
     Dates: start: 20141219
  11. LIORESAL [Suspect]
     Active Substance: BACLOFEN
     Dosage: 1462.6 ?G, \DAY
     Route: 037
     Dates: start: 20150508
  12. LIORESAL [Suspect]
     Active Substance: BACLOFEN
     Dosage: 350 ?G, \DAY
     Route: 037

REACTIONS (11)
  - Dysphonia [Unknown]
  - Weight decreased [Unknown]
  - Unevaluable event [Unknown]
  - Urinary retention [Unknown]
  - Prostatic specific antigen increased [Recovering/Resolving]
  - Constipation [Unknown]
  - Klebsiella infection [Unknown]
  - Muscle spasms [Unknown]
  - Muscle spasticity [Unknown]
  - Drug withdrawal syndrome [Unknown]
  - Device infusion issue [Unknown]

NARRATIVE: CASE EVENT DATE: 2006
